FAERS Safety Report 14293694 (Version 3)
Quarter: 2018Q1

REPORT INFORMATION
  Report Type: Spontaneous
  Country: US (occurrence: US)
  Receive Date: 20171216
  Receipt Date: 20180212
  Transmission Date: 20180509
  Serious: Yes (Other)
  Sender: FDA-Public Use
  Company Number: US-009507513-1712USA004854

PATIENT
  Age: 64 Year
  Sex: Male
  Weight: 82.09 kg

DRUGS (7)
  1. METFORMIN [Concomitant]
     Active Substance: METFORMIN HYDROCHLORIDE
     Dosage: UNK UNK, BID
  2. METOPROLOL SUCCINATE. [Concomitant]
     Active Substance: METOPROLOL SUCCINATE
     Dosage: UNK UNK, QD
  3. ALPRAZOLAM. [Concomitant]
     Active Substance: ALPRAZOLAM
     Dosage: UNK UNK, QD
  4. ZEPATIER [Suspect]
     Active Substance: ELBASVIR\GRAZOPREVIR
     Indication: CHRONIC HEPATITIS C
     Dosage: 1 TABLET, ONCE DAILY
     Route: 048
     Dates: start: 20171027, end: 20171206
  5. PRINIVIL [Concomitant]
     Active Substance: LISINOPRIL
     Dosage: UNK UNK, QD
     Route: 048
  6. OXYCODONE [Concomitant]
     Active Substance: OXYCODONE
     Dosage: 30 MG, Q8H
     Route: 048
  7. ATORVASTATIN [Suspect]
     Active Substance: ATORVASTATIN
     Dosage: 40 MG, QD
     Dates: end: 2017

REACTIONS (3)
  - Gait inability [Recovered/Resolved]
  - Drug interaction [Unknown]
  - Dizziness [Recovered/Resolved]

NARRATIVE: CASE EVENT DATE: 2017
